FAERS Safety Report 7255054-4 (Version None)
Quarter: 2011Q1

REPORT INFORMATION
  Report Type: 
  Country: None (occurrence: None)
  Receive Date: 20110129
  Receipt Date: 20100329
  Transmission Date: 20110831
  Serious: No
  Sender: FDA-Public Use
  Company Number: US-ABBOTT-10P-163-0635308-00

PATIENT
  Sex: Female
  Weight: 56.296 kg

DRUGS (1)
  1. HUMIRA [Suspect]
     Indication: RHEUMATOID ARTHRITIS
     Dates: start: 20091101

REACTIONS (7)
  - PRURITUS [None]
  - FATIGUE [None]
  - HEADACHE [None]
  - SENSORY DISTURBANCE [None]
  - SKIN BURNING SENSATION [None]
  - BLOOD PRESSURE INCREASED [None]
  - ERYTHEMA [None]
